FAERS Safety Report 12533043 (Version 1)
Quarter: 2016Q3

REPORT INFORMATION
  Report Type: Spontaneous
  Country: US (occurrence: US)
  Receive Date: 20160706
  Receipt Date: 20160706
  Transmission Date: 20161109
  Serious: No
  Sender: FDA-Public Use
  Company Number: US-PURDUE-USA-2015-0126675

PATIENT
  Age: 57 Year
  Sex: Male

DRUGS (2)
  1. BUTRANS [Suspect]
     Active Substance: BUPRENORPHINE
     Indication: NECK PAIN
     Dosage: 20 MCG/HR, WEEKLY
     Route: 062
     Dates: start: 20150720
  2. BUTRANS [Suspect]
     Active Substance: BUPRENORPHINE
     Indication: PAIN IN JAW
     Dosage: 20 MCG/HR, WEEKLY
     Route: 062
     Dates: start: 20150614

REACTIONS (6)
  - Hyperhidrosis [Unknown]
  - Application site rash [Unknown]
  - Wrong technique in product usage process [Unknown]
  - Application site pruritus [Recovering/Resolving]
  - Product adhesion issue [Unknown]
  - Product physical issue [Unknown]

NARRATIVE: CASE EVENT DATE: 201509
